FAERS Safety Report 9668744 (Version 3)
Quarter: 2013Q4

REPORT INFORMATION
  Report Type: Spontaneous
  Country: US (occurrence: US)
  Receive Date: 20131105
  Receipt Date: 20131118
  Transmission Date: 20140711
  Serious: Yes (Other)
  Sender: FDA-Public Use
  Company Number: US-JNJFOC-20131005381

PATIENT
  Age: 88 Year
  Sex: Female

DRUGS (11)
  1. XARELTO [Suspect]
     Indication: CEREBROVASCULAR ACCIDENT PROPHYLAXIS
     Route: 048
     Dates: end: 201310
  2. XARELTO [Suspect]
     Indication: ATRIAL FIBRILLATION
     Route: 048
     Dates: end: 201310
  3. ARANESP [Concomitant]
  4. DULERA [Concomitant]
  5. DILTIAZEM CD [Concomitant]
  6. LYRICA [Concomitant]
  7. FUROSEMIDE [Concomitant]
  8. LEVOTHYROXINE [Concomitant]
  9. OMEPRAZOLE [Concomitant]
  10. OXYCONTIN [Concomitant]
  11. PRO AIR [Concomitant]

REACTIONS (2)
  - Hepatic enzyme increased [Recovering/Resolving]
  - Haematoma [Unknown]
